FAERS Safety Report 5251519-5 (Version None)
Quarter: 2007Q1

REPORT INFORMATION
  Report Type: 
  Country: None (occurrence: None)
  Receive Date: 20070228
  Receipt Date: 20060522
  Transmission Date: 20070707
  Serious: No
  Sender: FDA-Public Use
  Company Number: US-GLAXOSMITHKLINE-A0606525A

PATIENT
  Age: 49 Year
  Sex: Female

DRUGS (6)
  1. LAMICTAL [Suspect]
     Indication: DEPRESSION
     Dosage: 200MG PER DAY
     Route: 048
     Dates: start: 20060101
  2. ZEBETA [Concomitant]
  3. GLUCOPHAGE [Concomitant]
  4. ATIVAN [Concomitant]
  5. VENTOLIN [Concomitant]
  6. FLOVENT [Concomitant]

REACTIONS (8)
  - COUGH [None]
  - ERYTHEMA [None]
  - LYMPHADENOPATHY [None]
  - PRURITUS [None]
  - RASH [None]
  - RASH MACULAR [None]
  - SUNBURN [None]
  - SWOLLEN TONGUE [None]
